FAERS Safety Report 9927677 (Version 1)
Quarter: 2014Q1

REPORT INFORMATION
  Report Type: Spontaneous
  Country: US (occurrence: US)
  Receive Date: 20140227
  Receipt Date: 20140227
  Transmission Date: 20141002
  Serious: No
  Sender: FDA-Public Use
  Company Number: US-BIOGENIDEC-2014BI018951

PATIENT
  Age: 62 Year
  Sex: Female

DRUGS (4)
  1. AVONEX [Suspect]
     Indication: MULTIPLE SCLEROSIS
     Route: 030
     Dates: start: 20110311
  2. CITALOPRAM HYDROBROMIDE [Concomitant]
  3. HYDROCHLOROTHIAZIDE [Concomitant]
  4. TRAVATAN Z [Concomitant]

REACTIONS (1)
  - Influenza [Unknown]
